FAERS Safety Report 7403042-7 (Version None)
Quarter: 2011Q1

REPORT INFORMATION
  Report Type: 
  Country: None (occurrence: None)
  Receive Date: 20110316
  Receipt Date: 20110307
  Transmission Date: 20110831
  Serious: Yes (Other)
  Sender: FDA-Public Use
  Company Number: 2011027827

PATIENT
  Age: 82 Year
  Sex: Male
  Weight: 102.0593 kg

DRUGS (8)
  1. EPINEPHRINE [Concomitant]
  2. DOXAZOSIN MESYL (DOXAZOSIN) [Concomitant]
  3. OXYBUTYNIN [Concomitant]
  4. HIZENTRA (IMMUNOGLOBULIN HUMAN NORMAL) [Suspect]
  5. FINASTERIDE [Concomitant]
  6. ASPIRIN [Concomitant]
  7. HIZENTRA (IMMUNOGLOBULIN HUMAN NORMAL) [Suspect]
     Indication: IMMUNODEFICIENCY COMMON VARIABLE
     Dosage: SEE IMAGE
     Route: 058
     Dates: start: 20110304
  8. DIPHENHYDRAMINE HCL [Concomitant]

REACTIONS (1)
  - ATRIAL FIBRILLATION [None]
